FAERS Safety Report 8354401 (Version 5)
Quarter: 2014Q2

REPORT INFORMATION
  Report Type: Report from Study
  Country: US (occurrence: US)
  Receive Date: 20120125
  Receipt Date: 20140617
  Transmission Date: 20141212
  Serious: Yes (Death, Life-Threatening, Hospitalization)
  Sender: FDA-Public Use
  Company Number: PHHO2011US08570

PATIENT
  Age: 74 Year
  Sex: Male
  Weight: 85.9 kg

DRUGS (59)
  1. SPIRONOLACTONE [Suspect]
     Indication: CARDIAC FAILURE CHRONIC
     Dosage: 25 MG, BID
     Route: 048
     Dates: start: 20110412
  2. WARFARIN [Suspect]
     Indication: CARDIAC FAILURE CHRONIC
     Dosage: 5 MG, QD
     Route: 048
     Dates: start: 20101221
  3. WARFARIN [Suspect]
     Dosage: 7.5 MG, QD
     Route: 048
     Dates: start: 20101221
  4. BLINDED ENALAPRIL [Suspect]
     Indication: CARDIAC FAILURE CHRONIC
     Dosage: CODE NOT BROKEN
     Dates: start: 20110311
  5. BLINDED LCZ696 [Suspect]
     Indication: CARDIAC FAILURE CHRONIC
     Dosage: CODE NOT BROKEN
     Dates: start: 20110311
  6. BLINDED NO TREATMENT RECEIVED [Suspect]
     Indication: CARDIAC FAILURE CHRONIC
     Dosage: CODE NOT BROKEN
     Dates: start: 20110311
  7. BLINDED ENALAPRIL [Suspect]
     Dosage: NO TREATMENT
     Dates: start: 20110514, end: 20110519
  8. BLINDED LCZ696 [Suspect]
     Dosage: NO TREATMENT
     Dates: start: 20110514, end: 20110519
  9. BLINDED NO TREATMENT RECEIVED [Suspect]
     Dosage: NO TREATMENT
     Dates: start: 20110514, end: 20110519
  10. BLINDED ENALAPRIL [Suspect]
     Dosage: CODE NOT BROKEN
     Dates: start: 20110520, end: 20110708
  11. BLINDED LCZ696 [Suspect]
     Dosage: CODE NOT BROKEN
     Dates: start: 20110520, end: 20110708
  12. BLINDED NO TREATMENT RECEIVED [Suspect]
     Dosage: CODE NOT BROKEN
     Dates: start: 20110520, end: 20110708
  13. AVELOX [Concomitant]
     Indication: UPPER RESPIRATORY TRACT INFECTION
     Dosage: 400 MG, QD
     Route: 048
     Dates: start: 20110316, end: 20110320
  14. POTASSIUM SUPPLEMENTS [Concomitant]
     Indication: HYPOKALAEMIA
     Dosage: 20 MEQ, BID
     Route: 048
     Dates: start: 2001, end: 20110405
  15. POTASSIUM SUPPLEMENTS [Concomitant]
     Dosage: 20 MEQ, QD
     Route: 048
     Dates: start: 20110412
  16. GLYBURIDE [Concomitant]
     Indication: TYPE 2 DIABETES MELLITUS
     Dosage: 10 MG, BID
     Route: 048
     Dates: start: 20110410
  17. LASIX [Concomitant]
     Indication: CARDIAC FAILURE CHRONIC
     Dosage: 120 MG, QD
     Route: 048
     Dates: start: 2001, end: 20110409
  18. LASIX [Concomitant]
     Dosage: 160 MG, QD
     Route: 048
     Dates: start: 20110410, end: 20110415
  19. BUMEX [Concomitant]
     Indication: CARDIAC FAILURE CHRONIC
     Dosage: 4 MG, BID
     Route: 048
     Dates: start: 20110415, end: 20110509
  20. BUMEX [Concomitant]
     Dosage: 4 MG, QD
     Route: 048
     Dates: start: 20110510
  21. GABAPENTIN [Concomitant]
     Indication: DIABETIC NEUROPATHY
     Dosage: 300 MG, QHS
     Route: 048
     Dates: start: 20110422, end: 20110505
  22. GABAPENTIN [Concomitant]
     Dosage: 300 MG, BID
     Route: 048
     Dates: start: 20110506
  23. ROCEPHIN [Concomitant]
     Indication: CELLULITIS
     Dosage: 1000 MG, X 1
     Route: 030
     Dates: start: 20110510
  24. BACTRIM [Concomitant]
     Indication: CELLULITIS
     Dosage: 1 DF, BID
     Route: 048
     Dates: start: 20110510
  25. LISINOPRIL [Concomitant]
     Indication: HYPERTENSION
     Dosage: 40 MG, QD
     Route: 048
     Dates: start: 2000, end: 20110113
  26. ATENOLOL [Concomitant]
     Indication: ATRIAL FIBRILLATION
     Dosage: 100 MG, QD
     Route: 048
     Dates: start: 2004
  27. DIGOXIN [Concomitant]
     Indication: CARDIAC FAILURE CHRONIC
     Dosage: 0.25 MG, QD
     Route: 048
     Dates: start: 2002
  28. ASA [Concomitant]
     Indication: PROPHYLAXIS
     Dosage: 81 MG, QD
     Route: 048
     Dates: start: 2002
  29. LANTUS [Concomitant]
     Indication: TYPE 2 DIABETES MELLITUS
     Dosage: 40 U, QHS
     Route: 058
     Dates: start: 20081215
  30. SAXAGLIPTIN [Concomitant]
     Indication: TYPE 2 DIABETES MELLITUS
     Dosage: 5 MG, QD
     Route: 048
     Dates: start: 20101028
  31. ACTOS [Concomitant]
     Indication: TYPE 2 DIABETES MELLITUS
     Dosage: 30 MG, QD
     Route: 048
     Dates: start: 20100511, end: 20110404
  32. METFORMIN [Concomitant]
     Indication: TYPE 2 DIABETES MELLITUS
     Dosage: 2000 MG, QD
     Route: 048
     Dates: start: 2000
  33. SPIRIVA [Concomitant]
     Indication: DYSPNOEA
     Dosage: 18 UG, PRN
     Route: 055
     Dates: start: 20100401
  34. PROAIR HFA [Concomitant]
     Indication: DYSPNOEA
     Dosage: 3 DF, QHS
     Route: 055
     Dates: start: 20100422
  35. LEXAPRO [Concomitant]
     Indication: DEPRESSION
     Dosage: 10 MG, QD
     Route: 048
     Dates: start: 20101221
  36. MOBIC [Concomitant]
     Indication: BACK PAIN
     Dosage: 15 MG, QD
     Route: 048
     Dates: start: 20101221
  37. CALCIUM [Concomitant]
     Dosage: 1000 MG, QD
     Route: 048
     Dates: start: 1990
  38. CEPHALEXIN [Concomitant]
     Indication: BRONCHITIS
     Dosage: 500 MG, TID
     Route: 048
     Dates: start: 20101221, end: 20101230
  39. ATROVENT [Concomitant]
     Indication: DYSPNOEA
     Dosage: 0.5 MG, UNK
     Route: 055
     Dates: start: 20110530
  40. CELEVAC [Concomitant]
     Indication: DEPRESSION
     Dosage: 20 MG, QD
     Route: 048
     Dates: start: 20110528, end: 20110528
  41. RESTORIL [Concomitant]
     Indication: DEPRESSION
     Dosage: 15 MG, QHS
     Route: 048
     Dates: start: 20110514
  42. NORVASC [Concomitant]
     Indication: HYPERTENSION
     Dosage: 10 MG, QD
     Route: 048
     Dates: start: 20110513
  43. PLAVIX [Concomitant]
     Indication: CARDIAC FAILURE CHRONIC
     Dosage: 150 MG, QD
     Route: 048
     Dates: start: 20110513, end: 20110518
  44. ZOFRAN [Concomitant]
     Indication: ISCHAEMIA
     Dosage: 4 MG, PRN
     Route: 042
     Dates: start: 20110513
  45. VALIUM [Concomitant]
     Indication: ISCHAEMIA
     Dosage: 10 MG, UNK
     Route: 048
     Dates: start: 20110513, end: 20110513
  46. KEFLEX [Concomitant]
     Indication: ISCHAEMIA
     Dosage: 500 MG, UNK
     Route: 048
     Dates: start: 20110513, end: 20110513
  47. ENALAPRIL [Concomitant]
     Indication: CARDIAC FAILURE CHRONIC
     Dosage: 40 MG, BID
     Route: 048
     Dates: start: 20110518
  48. GLUBORID [Concomitant]
     Indication: TYPE 2 DIABETES MELLITUS
     Dosage: 20 MG, BID
     Route: 048
     Dates: start: 20110513, end: 20110604
  49. LORTAB [Concomitant]
     Indication: ISCHAEMIA
     Dosage: 1500 MG, PRN
     Route: 048
     Dates: start: 20110513
  50. PNEUMOCOCCAL VACCINE [Concomitant]
     Indication: PNEUMONIA
     Dosage: 0.5 ML, UNK
     Route: 030
     Dates: start: 20110513, end: 20110513
  51. CARDIZEM [Concomitant]
     Indication: ATRIAL FIBRILLATION
     Dosage: 20 MG, UNK
     Route: 042
     Dates: start: 20110528, end: 20110528
  52. ZOCOR [Concomitant]
     Indication: HYPERLIPIDAEMIA
     Dosage: 20 MG, QHS
     Route: 048
     Dates: start: 20110604
  53. FENTANYL [Concomitant]
     Indication: ISCHAEMIA
     Dosage: 50 MG, PRN
     Route: 042
     Dates: start: 20110517, end: 20110517
  54. HYDRALAZINE [Concomitant]
     Indication: ISCHAEMIA
     Dosage: 10 MG, UNK
     Route: 042
     Dates: start: 20110517, end: 20110517
  55. AMLODIPINE [Concomitant]
  56. HYDROCHLOROTHIAZIDE [Concomitant]
  57. NOVOLOG [Concomitant]
  58. HYDRAZINE [Concomitant]
     Indication: ISCHAEMIA
     Dosage: 10 MG, QD
     Route: 042
     Dates: start: 20110517, end: 20110517
  59. ASPIRIN [Concomitant]

REACTIONS (6)
  - Gastrointestinal haemorrhage [Fatal]
  - Renal failure [Recovered/Resolved]
  - Acute myocardial infarction [Fatal]
  - Cardio-respiratory arrest [Fatal]
  - Cellulitis [Fatal]
  - Ischaemia [Recovered/Resolved]
